FAERS Safety Report 4527341-1 (Version None)
Quarter: 2004Q4

REPORT INFORMATION
  Report Type: 
  Country: None (occurrence: None)
  Receive Date: 20041214
  Receipt Date: 20041214
  Transmission Date: 20050328
  Serious: Yes (Hospitalization)
  Sender: FDA-Public Use
  Company Number: None

PATIENT
  Sex: Male

DRUGS (2)
  1. PRIMAQUINE PHOSPHATE [Suspect]
     Indication: MALARIA PROPHYLAXIS
     Dosage: 30 MG BASE  Q DAY  ORAL
     Route: 048
     Dates: start: 20041201, end: 20041213
  2. CHLOROQUINE PHOSPHATE [Concomitant]

REACTIONS (4)
  - CYANOSIS [None]
  - LIP DISCOLOURATION [None]
  - NAIL DISCOLOURATION [None]
  - PERIORBITAL DISORDER [None]
